FAERS Safety Report 9298292 (Version 1)
Quarter: 2013Q2

REPORT INFORMATION
  Report Type: Spontaneous
  Country: US (occurrence: US)
  Receive Date: 20130520
  Receipt Date: 20130520
  Transmission Date: 20140414
  Serious: Yes (Hospitalization)
  Sender: FDA-Public Use
  Company Number: US-SANOFI-AVENTIS-2013SA049613

PATIENT
  Age: 89 Year
  Sex: Male

DRUGS (2)
  1. LANTUS [Suspect]
     Indication: DIABETES MELLITUS
     Dosage: DOSE:12 UNIT(S)
  2. NOVOLIN [Suspect]
     Dosage: SLIDING SCALE DOSE:6 UNIT(S)

REACTIONS (6)
  - Cognitive disorder [Not Recovered/Not Resolved]
  - Infection [Not Recovered/Not Resolved]
  - Dementia [Not Recovered/Not Resolved]
  - Malaise [Not Recovered/Not Resolved]
  - Rash macular [Not Recovered/Not Resolved]
  - Blood glucose increased [Recovered/Resolved]
